FAERS Safety Report 22934306 (Version 2)
Quarter: 2023Q4

REPORT INFORMATION
  Report Type: Report from Study
  Country: CR (occurrence: CR)
  Receive Date: 20230912
  Receipt Date: 20231105
  Transmission Date: 20240109
  Serious: Yes (Hospitalization)
  Sender: FDA-Public Use
  Company Number: CR-002147023-NVSC2023CR151955

PATIENT
  Age: 70 Year
  Sex: Female

DRUGS (2)
  1. KISQALI [Suspect]
     Active Substance: RIBOCICLIB
     Indication: Breast cancer
     Dosage: 600 MG, QD
     Route: 048
     Dates: start: 20230222
  2. KISQALI [Suspect]
     Active Substance: RIBOCICLIB
     Dosage: 600 MG, QD (5 MONTHS AGO)
     Route: 048

REACTIONS (15)
  - Hip fracture [Unknown]
  - Road traffic accident [Unknown]
  - Inflammation [Unknown]
  - Pain [Unknown]
  - Fracture pain [Unknown]
  - Joint swelling [Unknown]
  - Hypoacusis [Unknown]
  - Memory impairment [Unknown]
  - Insomnia [Unknown]
  - Arthralgia [Unknown]
  - Tremor [Unknown]
  - Muscle spasms [Unknown]
  - Pain in extremity [Unknown]
  - Peripheral swelling [Unknown]
  - Back pain [Unknown]

NARRATIVE: CASE EVENT DATE: 20230201
